FAERS Safety Report 7450168-8 (Version None)
Quarter: 2011Q2

REPORT INFORMATION
  Report Type: 
  Country: None (occurrence: None)
  Receive Date: 20110502
  Receipt Date: 20110427
  Transmission Date: 20111010
  Serious: No
  Sender: FDA-Public Use
  Company Number: US-PFIZER INC-2011090956

PATIENT
  Age: 41 Year
  Sex: Female

DRUGS (5)
  1. LEXAPRO [Suspect]
     Indication: ANXIETY
  2. SYNTHROID [Concomitant]
     Indication: HYPOTHYROIDISM
     Dosage: UNK
  3. IMITREX [Concomitant]
     Indication: MIGRAINE
     Dosage: AS REQUIRED
  4. XANAX [Suspect]
     Indication: ANXIETY
     Dosage: 0.5 MG DAILY AS NEEDED
     Route: 048
     Dates: start: 20110404
  5. LEXAPRO [Suspect]
     Indication: DEPRESSION
     Dosage: 10 MG, 1X/DAY
     Route: 048
     Dates: start: 20110310

REACTIONS (4)
  - DRUG INTERACTION [None]
  - INSOMNIA [None]
  - DRUG INEFFECTIVE [None]
  - THERAPEUTIC RESPONSE UNEXPECTED [None]
